FAERS Safety Report 25224914 (Version 2)
Quarter: 2025Q2

REPORT INFORMATION
  Report Type: Spontaneous
  Country: CA (occurrence: CA)
  Receive Date: 20250422
  Receipt Date: 20250618
  Transmission Date: 20250717
  Serious: Yes (Other)
  Sender: PFIZER
  Company Number: CA-PFIZER INC-202500058061

PATIENT
  Age: 37 Year
  Sex: Female

DRUGS (3)
  1. ABRILADA [Suspect]
     Active Substance: ADALIMUMAB-AFZB
     Indication: Ankylosing spondylitis
     Route: 058
     Dates: start: 20240311
  2. ABRILADA [Suspect]
     Active Substance: ADALIMUMAB-AFZB
     Dates: start: 20250310
  3. CELECOXIB [Concomitant]
     Active Substance: CELECOXIB
     Dates: start: 202309

REACTIONS (3)
  - Haemorrhagic ovarian cyst [Unknown]
  - Skin irritation [Unknown]
  - Pain [Unknown]

NARRATIVE: CASE EVENT DATE: 20250101
